FAERS Safety Report 8229395-8 (Version None)
Quarter: 2012Q1

REPORT INFORMATION
  Report Type: 
  Country: None (occurrence: None)
  Receive Date: 20120322
  Receipt Date: 20120312
  Transmission Date: 20120608
  Serious: Yes (Hospitalization)
  Sender: FDA-Public Use
  Company Number: US-JNJFOC-20120306648

PATIENT
  Sex: Male
  Weight: 26.8 kg

DRUGS (3)
  1. INFLIXIMAB, RECOMBINANT [Suspect]
     Indication: INFLAMMATORY BOWEL DISEASE
     Route: 042
     Dates: start: 20110309
  2. PREDNISONE TAB [Concomitant]
  3. METRONIDAZOLE [Concomitant]

REACTIONS (1)
  - INFLAMMATORY BOWEL DISEASE [None]
